FAERS Safety Report 4657940-8 (Version None)
Quarter: 2005Q2

REPORT INFORMATION
  Report Type: 
  Country: None (occurrence: None)
  Receive Date: 20050510
  Receipt Date: 20050216
  Transmission Date: 20051028
  Serious: Yes (Hospitalization)
  Sender: FDA-Public Use
  Company Number: US-BRISTOL-MYERS SQUIBB COMPANY-12872461

PATIENT
  Age: 34 Year
  Sex: Female

DRUGS (1)
  1. ERBITUX [Suspect]
     Indication: COLON CANCER
     Dosage: THERAPY DATES 05-NOV-04 TO 27-JAN-05, DOSING 756 MG INITIAL, THEN 472.5 MG.
     Route: 042

REACTIONS (3)
  - ARTHRALGIA [None]
  - ASTHENIA [None]
  - PAIN IN EXTREMITY [None]
